FAERS Safety Report 4883296-1 (Version None)
Quarter: 2006Q1

REPORT INFORMATION
  Report Type: 
  Country: None (occurrence: None)
  Receive Date: 20060118
  Receipt Date: 20060106
  Transmission Date: 20060701
  Serious: Yes (Hospitalization)
  Sender: FDA-Public Use
  Company Number: FR-GILEAD-2006-0009075

PATIENT
  Age: 61 Year
  Sex: Male

DRUGS (3)
  1. VIREAD [Suspect]
     Route: 048
     Dates: start: 20041008
  2. EPIVIR [Suspect]
     Indication: HIV INFECTION
     Route: 048
     Dates: start: 20040319
  3. KALETRA [Suspect]
     Indication: HIV INFECTION
     Route: 048
     Dates: start: 20041008

REACTIONS (1)
  - EPULIS [None]
